FAERS Safety Report 9341097 (Version 1)
Quarter: 2013Q2

REPORT INFORMATION
  Report Type: Spontaneous
  Country: US (occurrence: US)
  Receive Date: 20130610
  Receipt Date: 20130610
  Transmission Date: 20140414
  Serious: Yes (Hospitalization, Other)
  Sender: FDA-Public Use
  Company Number: US-B.I. PHARMACEUTICALS,INC./RIDGEFIELD-2013-BI-16137BP

PATIENT
  Age: 61 Year
  Sex: Female

DRUGS (12)
  1. SPIRIVA [Suspect]
     Indication: CHRONIC OBSTRUCTIVE PULMONARY DISEASE
     Dosage: 18 MCG
     Route: 055
     Dates: start: 2008
  2. SPIRIVA [Suspect]
     Indication: EMPHYSEMA
  3. COMBIVENT [Suspect]
     Indication: CHRONIC OBSTRUCTIVE PULMONARY DISEASE
     Dosage: STRENGTH: 20 MCG / 100 MCG; DAILY DOSE: 80 MCG / 400 MCG
     Route: 055
     Dates: start: 20130522
  4. COMBIVENT [Suspect]
     Indication: EMPHYSEMA
  5. COMBIVENT [Suspect]
     Indication: CHRONIC OBSTRUCTIVE PULMONARY DISEASE
     Dosage: STRENGTH: 18 MCG / 103 MCG;
     Route: 055
     Dates: start: 2000, end: 20130521
  6. COMBIVENT [Suspect]
     Indication: EMPHYSEMA
  7. PREDNISONE [Concomitant]
     Indication: CHRONIC OBSTRUCTIVE PULMONARY DISEASE
     Dosage: 30 MG
     Route: 048
     Dates: start: 2012
  8. PREDNISONE [Concomitant]
     Indication: EMPHYSEMA
  9. BROVANA NEBULIZER [Concomitant]
     Indication: CHRONIC OBSTRUCTIVE PULMONARY DISEASE
     Route: 055
     Dates: start: 2012
  10. BROVANA NEBULIZER [Concomitant]
     Indication: EMPHYSEMA
  11. THEOPHYLLINE [Concomitant]
     Indication: CHRONIC OBSTRUCTIVE PULMONARY DISEASE
     Dosage: 600 MG
     Route: 048
     Dates: start: 1998
  12. THEOPHYLLINE [Concomitant]
     Indication: EMPHYSEMA

REACTIONS (7)
  - Chronic obstructive pulmonary disease [Recovered/Resolved]
  - Neoplasm malignant [Recovered/Resolved]
  - Neoplasm malignant [Recovered/Resolved]
  - Breast cancer [Recovered/Resolved]
  - Dyspnoea [Not Recovered/Not Resolved]
  - Bacterial disease carrier [Not Recovered/Not Resolved]
  - Candida infection [Recovered/Resolved]
